FAERS Safety Report 8064353 (Version 2)
Quarter: 2012Q4

REPORT INFORMATION
  Report Type: 
  Country: US (occurrence: US)
  Receive Date: 20110802
  Receipt Date: 20121018
  Transmission Date: 20130627
  Serious: Yes (Other)
  Sender: FDA-Public Use
  Company Number: US-PFIZER INC-HQWYE195224OCT05

PATIENT
  Age: 50 Year
  Sex: Female

DRUGS (5)
  1. PREMARIN [Suspect]
     Indication: HORMONE REPLACEMENT THERAPY
     Dosage: UNK
     Route: 048
     Dates: start: 19900322, end: 200112
  2. PROVERA [Suspect]
     Indication: HORMONE REPLACEMENT THERAPY
     Dosage: UNK,
     Route: 048
     Dates: start: 19900322, end: 200112
  3. MEDROXYPROGESTERONE ACETATE [Suspect]
     Dosage: UNK
     Route: 048
     Dates: start: 19900322, end: 200112
  4. CYCRIN [Suspect]
     Indication: HORMONE REPLACEMENT THERAPY
     Dosage: UNK
     Dates: start: 1990, end: 2001
  5. MEDROXYPROGESTERONE ACETATE [Suspect]
     Indication: HORMONE REPLACEMENT THERAPY
     Dosage: UNK
     Route: 048
     Dates: start: 19900322, end: 200112

REACTIONS (1)
  - Breast cancer [Unknown]
